FAERS Safety Report 7541514-5 (Version None)
Quarter: 2011Q2

REPORT INFORMATION
  Report Type: 
  Country: None (occurrence: None)
  Receive Date: 20110613
  Receipt Date: 20110606
  Transmission Date: 20111010
  Serious: No
  Sender: FDA-Public Use
  Company Number: US-BIOGENIDEC-2011BI021300

PATIENT
  Age: 41 Year
  Sex: Female

DRUGS (4)
  1. AVONEX [Suspect]
     Route: 030
     Dates: start: 20100829, end: 20101001
  2. AVONEX [Suspect]
     Indication: MULTIPLE SCLEROSIS
     Route: 030
     Dates: start: 20110403
  3. AVONEX [Suspect]
     Route: 030
     Dates: start: 20020101, end: 20020829
  4. AVONEX [Suspect]
     Route: 030

REACTIONS (6)
  - VOMITING [None]
  - NAUSEA [None]
  - EYE IRRITATION [None]
  - PYREXIA [None]
  - HEADACHE [None]
  - PAIN [None]
